FAERS Safety Report 4335701-7 (Version None)
Quarter: 2004Q2

REPORT INFORMATION
  Report Type: 
  Country: None (occurrence: None)
  Receive Date: 20040409
  Receipt Date: 20040322
  Transmission Date: 20050107
  Serious: Yes (Other)
  Sender: FDA-Public Use
  Company Number: FR-GLAXOSMITHKLINE-B0327623A

PATIENT
  Age: 40 Year
  Sex: Female
  Weight: 62 kg

DRUGS (3)
  1. ZYBAN [Suspect]
     Indication: EX-SMOKER
     Dosage: 150MG PER DAY
     Route: 048
     Dates: start: 20031021, end: 20031027
  2. MERCILON [Concomitant]
     Indication: CONTRACEPTION
     Route: 048
  3. REVAXIS [Concomitant]
     Indication: PROPHYLAXIS
     Route: 065
     Dates: start: 20031023, end: 20031023

REACTIONS (5)
  - ABDOMINAL PAIN [None]
  - ABDOMINAL PAIN LOWER [None]
  - BACK PAIN [None]
  - OLIGOMENORRHOEA [None]
  - PARAESTHESIA [None]
